FAERS Safety Report 6504781-2 (Version None)
Quarter: 2009Q4

REPORT INFORMATION
  Report Type: 
  Country: None (occurrence: None)
  Receive Date: 20091215
  Receipt Date: 20091201
  Transmission Date: 20100525
  Serious: Yes (Death)
  Sender: FDA-Public Use
  Company Number: 106

PATIENT
  Age: 31 Year
  Sex: Male

DRUGS (3)
  1. NODOZ TABLETS NOVARTIS [Suspect]
     Dosage: UP TO 50 TABLETS
  2. FAZACLO ODT [Suspect]
     Indication: SCHIZOPHRENIA
     Dosage: 1000 MG PO DAILY
     Dates: start: 20060902, end: 20070308
  3. DEPAKOTE [Concomitant]

REACTIONS (6)
  - CARDIAC ARREST [None]
  - COMPLETED SUICIDE [None]
  - CONVULSION [None]
  - HAEMATEMESIS [None]
  - INCORRECT DOSE ADMINISTERED [None]
  - TACHYCARDIA [None]
